FAERS Safety Report 25523049 (Version 1)
Quarter: 2025Q3

REPORT INFORMATION
  Report Type: Spontaneous
  Country: EU (occurrence: EU)
  Receive Date: 20250707
  Receipt Date: 20250707
  Transmission Date: 20251021
  Serious: Yes (Hospitalization)
  Sender: ABBVIE
  Company Number: None

PATIENT
  Age: 75 Year
  Sex: Female

DRUGS (2)
  1. ASACOL [Suspect]
     Active Substance: MESALAMINE
     Indication: Gastrointestinal inflammation
     Route: 048
     Dates: start: 20250508, end: 20250510
  2. ASACOL [Suspect]
     Active Substance: MESALAMINE
     Indication: Gastrointestinal inflammation
     Route: 048

REACTIONS (2)
  - Ear pruritus [Recovering/Resolving]
  - Urticaria [Recovering/Resolving]

NARRATIVE: CASE EVENT DATE: 20250510
